FAERS Safety Report 5078285-0 (Version None)
Quarter: 2006Q3

REPORT INFORMATION
  Report Type: 
  Country: None (occurrence: None)
  Receive Date: 20060811
  Receipt Date: 20060803
  Transmission Date: 20061208
  Serious: Yes (Hospitalization)
  Sender: FDA-Public Use
  Company Number: GB-MERCK-0608GBR00032

PATIENT
  Sex: Female

DRUGS (8)
  1. MIDAMOR [Suspect]
     Indication: HYPERTENSION
     Route: 048
     Dates: start: 20020101, end: 20060707
  2. AMLODIPINE BESYLATE [Concomitant]
     Indication: HYPERTENSION
     Route: 048
     Dates: start: 20040101
  3. ASPIRIN [Suspect]
     Route: 065
  4. CAFFEINE [Suspect]
     Route: 065
  5. PROPOXYPHENE NAPSYLATE [Suspect]
     Route: 065
  6. HYDROCHLOROTHIAZIDE [Suspect]
     Route: 065
  7. PHENACETIN [Suspect]
     Route: 065
  8. PHENOXYBENZAMINE HYDROCHLORIDE [Suspect]
     Route: 065

REACTIONS (3)
  - BLOOD PRESSURE DECREASED [None]
  - BRADYCARDIA [None]
  - FALL [None]
